FAERS Safety Report 6648087-X (Version None)
Quarter: 2010Q1

REPORT INFORMATION
  Report Type: 
  Country: None (occurrence: None)
  Receive Date: 20100324
  Receipt Date: 20100319
  Transmission Date: 20100710
  Serious: Yes (Death)
  Sender: FDA-Public Use
  Company Number: PHEH2009US18953

PATIENT
  Sex: Male
  Weight: 81.3 kg

DRUGS (7)
  1. GLEEVEC [Suspect]
     Indication: GASTROINTESTINAL CARCINOMA
     Dosage: 100 MG, TID
     Route: 048
     Dates: start: 20090226, end: 20090421
  2. HYDROCHLOROTHIAZIDE [Concomitant]
  3. TERAZOSIN HCL [Concomitant]
  4. NIASPAN [Concomitant]
  5. METOPROLOL [Concomitant]
  6. AVALIDE [Concomitant]
  7. ALLOPURINOL [Concomitant]

REACTIONS (1)
  - DEATH [None]
